FAERS Safety Report 9374603 (Version 2)
Quarter: 2013Q3

REPORT INFORMATION
  Report Type: Spontaneous
  Country: US (occurrence: US)
  Receive Date: 20130628
  Receipt Date: 20130715
  Transmission Date: 20140515
  Serious: Yes (Other)
  Sender: FDA-Public Use
  Company Number: US-JNJFOC-20130612811

PATIENT
  Age: 72 Year
  Sex: Male

DRUGS (11)
  1. REMICADE [Suspect]
     Indication: RHEUMATOID ARTHRITIS
     Dosage: 2ND DOSE
     Route: 042
     Dates: start: 20130521
  2. REMICADE [Suspect]
     Indication: RHEUMATOID ARTHRITIS
     Dosage: 1ST DOSE
     Route: 042
     Dates: start: 20130506
  3. D-AMPHETAMINE SALT COMBO [Concomitant]
     Route: 065
  4. BABY ASPIRIN [Concomitant]
     Route: 065
  5. BUPROPION [Concomitant]
     Dosage: XL
     Route: 065
  6. IRON [Concomitant]
     Route: 065
  7. FOLIC ACID [Concomitant]
     Route: 065
  8. METHOTREXATE [Concomitant]
     Route: 065
  9. PREDNISONE [Concomitant]
     Route: 065
  10. SIMVASTATIN [Concomitant]
     Route: 065
  11. TAMSULOSIN [Concomitant]
     Route: 065

REACTIONS (1)
  - Pulmonary embolism [Unknown]
